FAERS Safety Report 6980282-2 (Version None)
Quarter: 2010Q3

REPORT INFORMATION
  Report Type: 
  Country: None (occurrence: None)
  Receive Date: 20100909
  Receipt Date: 20100903
  Transmission Date: 20110219
  Serious: Yes (Death)
  Sender: FDA-Public Use
  Company Number: ENTC2010-0299

PATIENT
  Age: 74 Year
  Sex: Female

DRUGS (4)
  1. STALEVO 100 [Suspect]
     Indication: PARKINSON'S DISEASE
     Dosage: 50/12.5/200 MG, 3 DF, QD ORAL
     Route: 048
  2. METFORMIN [Concomitant]
  3. BROTIZOLAM [Concomitant]
  4. TITACE [Concomitant]

REACTIONS (1)
  - RESPIRATORY DISORDER [None]
